FAERS Safety Report 19214303 (Version 2)
Quarter: 2021Q2

REPORT INFORMATION
  Report Type: Spontaneous
  Country: GB (occurrence: GB)
  Receive Date: 20210504
  Receipt Date: 20210514
  Transmission Date: 20210717
  Serious: Yes (Other)
  Sender: FDA-Public Use
  Company Number: GB-B.I. PHARMACEUTICALS,INC./RIDGEFIELD-2021-BI-100183

PATIENT
  Age: 55 Year
  Sex: Female
  Weight: 101 kg

DRUGS (4)
  1. RAMIPRIL. [Concomitant]
     Active Substance: RAMIPRIL
     Indication: ILL-DEFINED DISORDER
     Dosage: ONE AT NIGHT TIME
     Dates: start: 20140130
  2. AMLODIPINE [Concomitant]
     Active Substance: AMLODIPINE BESYLATE
     Indication: ILL-DEFINED DISORDER
     Dosage: TAKE ONE DAILY
     Dates: start: 20160930
  3. JARDIANCE [Suspect]
     Active Substance: EMPAGLIFLOZIN
     Indication: ILL-DEFINED DISORDER
     Route: 048
     Dates: start: 20200112, end: 20210426
  4. METFORMIN [Concomitant]
     Active Substance: METFORMIN HYDROCHLORIDE
     Indication: ILL-DEFINED DISORDER
     Dosage: 2 DOSAGE FORM TWICE DAILY
     Dates: start: 20150225

REACTIONS (1)
  - Nausea [Recovered/Resolved]

NARRATIVE: CASE EVENT DATE: 20210112
